FAERS Safety Report 25092462 (Version 1)
Quarter: 2025Q1

REPORT INFORMATION
  Report Type: Spontaneous
  Country: US (occurrence: None)
  Receive Date: 20250319
  Receipt Date: 20250319
  Transmission Date: 20250408
  Serious: Yes (Other)
  Sender: CMP PHARMA
  Company Number: US-CMPPHARMA-000490

PATIENT
  Age: 54 Year
  Sex: Male

DRUGS (1)
  1. TADLIQ [Suspect]
     Active Substance: TADALAFIL
     Indication: Product used for unknown indication

REACTIONS (2)
  - Cerebral vasoconstriction [Recovering/Resolving]
  - Transient ischaemic attack [Recovering/Resolving]
